FAERS Safety Report 4507477-1 (Version None)
Quarter: 2004Q4

REPORT INFORMATION
  Report Type: 
  Country: None (occurrence: None)
  Receive Date: 20041118
  Receipt Date: 20041110
  Transmission Date: 20050328
  Serious: Yes (Hospitalization)
  Sender: FDA-Public Use
  Company Number: 04-0078PO

PATIENT
  Age: 35 Year
  Sex: Male
  Weight: 54.9 kg

DRUGS (6)
  1. MEFENAMIC ACID [Suspect]
     Indication: ARTHRALGIA
     Dosage: PO
     Route: 048
     Dates: start: 20040402
  2. MEFENAMIC ACID [Suspect]
     Indication: MALAISE
     Dosage: PO
     Route: 048
     Dates: start: 20040402
  3. MEFENAMIC ACID [Suspect]
     Indication: PYREXIA
     Dosage: PO
     Route: 048
     Dates: start: 20040402
  4. ANTIBIOTIC AND FLUID REPLACEMENT THERAPIES [Concomitant]
  5. PL (SALICYLAMIDE/ACETAMINOPHEN/CAFFEINE/PROMETHAZINE METHYLEN) [Concomitant]
  6. CLARITHROMYCIN [Concomitant]

REACTIONS (10)
  - ABDOMINAL DISCOMFORT [None]
  - ASCITES [None]
  - BLOOD CREATININE INCREASED [None]
  - BLOOD URINE [None]
  - COMPLEMENT FACTOR C3 DECREASED [None]
  - COMPLEMENT FACTOR C4 DECREASED [None]
  - PROTEIN URINE PRESENT [None]
  - RENAL HYPERTROPHY [None]
  - RENAL IMPAIRMENT [None]
  - TUBULOINTERSTITIAL NEPHRITIS [None]
